FAERS Safety Report 21206515 (Version 1)
Quarter: 2022Q3

REPORT INFORMATION
  Report Type: Spontaneous
  Country: US (occurrence: None)
  Receive Date: 20220811
  Receipt Date: 20220811
  Transmission Date: 20221027
  Serious: Yes (Other)
  Sender: FDA-Public Use
  Company Number: None

PATIENT
  Sex: Female

DRUGS (1)
  1. NEUTROGENA BEACH DEFENSE WATER PLUS SUN PROTECTION SUNSCREEN BROAD SPE [Suspect]
     Active Substance: AVOBENZONE\HOMOSALATE\OCTISALATE\OCTOCRYLENE
     Indication: Prophylaxis against solar radiation
     Dosage: OTHER QUANTITY : 1 SPRAY(S);?
     Route: 061
     Dates: start: 20220806, end: 20220806

REACTIONS (3)
  - Application site rash [None]
  - Urticaria [None]
  - Recalled product administered [None]

NARRATIVE: CASE EVENT DATE: 20220806
